FAERS Safety Report 6156898-2 (Version None)
Quarter: 2009Q2

REPORT INFORMATION
  Report Type: 
  Country: None (occurrence: None)
  Receive Date: 20090416
  Receipt Date: 20090410
  Transmission Date: 20091009
  Serious: Yes (Hospitalization)
  Sender: FDA-Public Use
  Company Number: US-WYE-H08180409

PATIENT
  Age: 46 Year
  Sex: Female
  Weight: 61.74 kg

DRUGS (10)
  1. TORISEL [Suspect]
     Indication: MALIGNANT MELANOMA
     Dosage: ONE DOSE (25MG)
     Dates: start: 20090210, end: 20090210
  2. TORISEL [Suspect]
     Route: 042
     Dates: start: 20090224, end: 20090324
  3. TRICOR [Concomitant]
  4. SYNTHROID [Concomitant]
  5. COMPAZINE [Concomitant]
  6. IBUPROFEN [Concomitant]
  7. PERCOCET [Concomitant]
  8. SALBUTAMOL [Concomitant]
  9. NEXAVAR [Concomitant]
     Route: 048
  10. DECADRON [Concomitant]
     Dosage: 2 MG AT UNKNOWN FREQUENCY

REACTIONS (1)
  - CEREBRAL HAEMORRHAGE [None]
